FAERS Safety Report 16799762 (Version 3)
Quarter: 2019Q4

REPORT INFORMATION
  Report Type: Spontaneous
  Country: JP (occurrence: JP)
  Receive Date: 20190912
  Receipt Date: 20191111
  Transmission Date: 20200122
  Serious: Yes (Other)
  Sender: FDA-Public Use
  Company Number: JP-PFIZER INC-2019385762

PATIENT
  Age: 71 Year
  Sex: Female
  Weight: 53 kg

DRUGS (6)
  1. LYRICA [Suspect]
     Active Substance: PREGABALIN
     Dosage: 25 MG, UNK
     Route: 048
     Dates: start: 20190826
  2. CELECOX [Suspect]
     Active Substance: CELECOXIB
     Dosage: 100 MG, 2X/DAY
     Route: 048
     Dates: start: 20190729, end: 20190809
  3. CELECOX [Suspect]
     Active Substance: CELECOXIB
     Dosage: 100 MG, 2X/DAY
     Route: 048
     Dates: start: 20190722, end: 20190729
  4. LYRICA [Suspect]
     Active Substance: PREGABALIN
     Dosage: 25 MG, 2X/DAY
     Route: 048
     Dates: start: 20190722, end: 20190729
  5. LYRICA [Suspect]
     Active Substance: PREGABALIN
     Dosage: 75 MG, 2X/DAY
     Route: 048
     Dates: start: 20190729
  6. REBAMIPIDE [Suspect]
     Active Substance: REBAMIPIDE
     Dosage: 100 MG, UNK
     Dates: start: 20190722

REACTIONS (19)
  - Drug eruption [Unknown]
  - Somnolence [Unknown]
  - Intentional product misuse [Recovered/Resolved]
  - Upper airway obstruction [Not Recovered/Not Resolved]
  - Dyspnoea [Not Recovered/Not Resolved]
  - Fall [Unknown]
  - Erythema multiforme [Unknown]
  - Rash [Unknown]
  - Tongue disorder [Unknown]
  - Eczema [Recovered/Resolved]
  - Dysphonia [Recovered/Resolved]
  - Pollakiuria [Unknown]
  - Palpitations [Unknown]
  - Cough [Not Recovered/Not Resolved]
  - Hypertonia [Unknown]
  - Mucosal disorder [Recovered/Resolved]
  - Rash erythematous [Unknown]
  - Oedema mucosal [Unknown]
  - Frequent bowel movements [Unknown]

NARRATIVE: CASE EVENT DATE: 2019
